FAERS Safety Report 17437453 (Version 1)
Quarter: 2020Q1

REPORT INFORMATION
  Report Type: Spontaneous
  Country: US (occurrence: US)
  Receive Date: 20200219
  Receipt Date: 20200219
  Transmission Date: 20200409
  Serious: No
  Sender: FDA-Public Use
  Company Number: US-TEVA-2020-US-1186499

PATIENT
  Sex: Female

DRUGS (1)
  1. BACLOFEN. [Suspect]
     Active Substance: BACLOFEN
     Indication: NECK PAIN
     Route: 065

REACTIONS (7)
  - Joint instability [Unknown]
  - Product quality issue [Unknown]
  - Memory impairment [Unknown]
  - Gait disturbance [Unknown]
  - Dizziness [Unknown]
  - Nightmare [Recovered/Resolved]
  - Drug intolerance [Unknown]

NARRATIVE: CASE EVENT DATE: 20200210
